FAERS Safety Report 4333346-6 (Version None)
Quarter: 2004Q1

REPORT INFORMATION
  Report Type: 
  Country: None (occurrence: None)
  Receive Date: 20040329
  Receipt Date: 20040122
  Transmission Date: 20041129
  Serious: No
  Sender: FDA-Public Use
  Company Number: 04P-163-0247948-00

PATIENT
  Age: 59 Year
  Sex: Female
  Weight: 58.9676 kg

DRUGS (5)
  1. HUMIRA [Suspect]
     Indication: RHEUMATOID ARTHRITIS
     Dosage: 40 MG, 1 IN 2 WK, SUBCUTANEOUS
     Route: 058
     Dates: start: 20031101, end: 20031201
  2. LEFLUNOMIDE [Concomitant]
  3. PROPYLTHIOURACIL [Concomitant]
  4. IRBESARTAN [Concomitant]
  5. ZETIA [Concomitant]

REACTIONS (5)
  - BURNING SENSATION [None]
  - DIFFICULTY IN WALKING [None]
  - DRUG INEFFECTIVE [None]
  - FEELING HOT [None]
  - PARAESTHESIA [None]
